FAERS Safety Report 6135359-0 (Version None)
Quarter: 2009Q1

REPORT INFORMATION
  Report Type: 
  Country: None (occurrence: None)
  Receive Date: 20090327
  Receipt Date: 20090318
  Transmission Date: 20090719
  Serious: Yes (Other)
  Sender: FDA-Public Use
  Company Number: US-ABBOTT-09P-163-0563692-00

PATIENT
  Sex: Female
  Weight: 82.628 kg

DRUGS (8)
  1. HUMIRA [Suspect]
     Indication: RHEUMATOID ARTHRITIS
     Route: 058
     Dates: start: 20070101, end: 20080101
  2. HUMIRA [Suspect]
     Dosage: WEEKLY
     Route: 058
     Dates: start: 20080101
  3. FLEXERIL [Concomitant]
     Indication: DRUG USE FOR UNKNOWN INDICATION
     Dosage: 2 PILLS DAILY IN AM AND PM
     Route: 058
  4. CELEBREX [Concomitant]
     Indication: DRUG USE FOR UNKNOWN INDICATION
     Dosage: 2  PILLS DAILY
  5. UNKNOWN VITAMIN [Concomitant]
     Indication: DRUG USE FOR UNKNOWN INDICATION
     Dosage: DAILY
  6. METHOTREXATE [Concomitant]
     Indication: RHEUMATOID ARTHRITIS
     Dosage: 20 MG INJECTION WEEKLY
     Route: 050
  7. AMBIEN CR [Concomitant]
     Indication: DRUG USE FOR UNKNOWN INDICATION
     Dosage: DAILY AT HOUR OF SLEEP
     Route: 048
  8. TRAMADOL HCL [Concomitant]
     Indication: PAIN
     Dosage: 37.5/325 MG -1 TO 2 TABLETS PRN

REACTIONS (10)
  - EXOSTOSIS [None]
  - FACET JOINT SYNDROME [None]
  - INTERVERTEBRAL DISC PROTRUSION [None]
  - MUSCULOSKELETAL PAIN [None]
  - NECK PAIN [None]
  - NERVE COMPRESSION [None]
  - PERIPHERAL NERVE DECOMPRESSION [None]
  - POLYP [None]
  - RHEUMATOID ARTHRITIS [None]
  - SPINAL OSTEOARTHRITIS [None]
